FAERS Safety Report 7553864-7 (Version None)
Quarter: 2011Q2

REPORT INFORMATION
  Report Type: 
  Country: None (occurrence: None)
  Receive Date: 20110617
  Receipt Date: 20110613
  Transmission Date: 20111010
  Serious: Yes (Death, Hospitalization, Other)
  Sender: FDA-Public Use
  Company Number: AR-BRISTOL-MYERS SQUIBB COMPANY-15417082

PATIENT
  Age: 87 Year
  Sex: Female

DRUGS (4)
  1. PLACEBO [Suspect]
     Indication: THROMBOSIS PROPHYLAXIS
     Dosage: INTERRUPTED ON 30NOV10
     Route: 048
     Dates: start: 20090903
  2. WARFARIN SODIUM [Suspect]
     Indication: THROMBOSIS PROPHYLAXIS
     Dosage: INTERRUPTED ON 30NOV10
     Route: 048
     Dates: start: 20090903
  3. ATORVASTATIN [Concomitant]
     Dates: start: 20100906
  4. DILTIAZEM HCL [Concomitant]
     Dates: start: 20060401

REACTIONS (2)
  - THROMBOCYTOPENIA [None]
  - ARTERIAL THROMBOSIS [None]
